FAERS Safety Report 9310185 (Version 1)
Quarter: 2013Q2

REPORT INFORMATION
  Report Type: Spontaneous
  Country: BR (occurrence: BR)
  Receive Date: 20130527
  Receipt Date: 20130527
  Transmission Date: 20140414
  Serious: Yes (Other)
  Sender: FDA-Public Use
  Company Number: BR-ACCORD-017769

PATIENT
  Age: 48 Year
  Sex: Female
  Weight: 55 kg

DRUGS (9)
  1. PACLITAXEL [Suspect]
     Indication: CERVIX CARCINOMA
     Dosage: AFTER IMPROVEMENT OF SYMPTOMS, THE INFUSION WAS RESTARTED AT A REDUCED SPEED WILL HALF
     Route: 042
     Dates: start: 20121221
  2. DIPYRONE [Concomitant]
     Route: 048
     Dates: start: 20121217, end: 20130117
  3. CARBOPLATIN [Concomitant]
     Indication: CHEMOTHERAPY
     Route: 042
     Dates: start: 20121221, end: 20130205
  4. ONDANSETRON [Concomitant]
     Route: 042
     Dates: start: 20121221, end: 20130205
  5. RANITIDINE HYDROCHLORIDE [Concomitant]
     Route: 042
     Dates: start: 20121221, end: 20130205
  6. DEXAMETHASONE [Concomitant]
     Route: 042
     Dates: start: 20121221, end: 20130205
  7. LACTULOSE [Concomitant]
     Dosage: DOSE: 1 SPOON
     Route: 048
     Dates: start: 20121217, end: 20130117
  8. DIPHENHYDRAMINE HYDROCHLORIDE [Concomitant]
     Route: 042
     Dates: start: 20121221, end: 20130205
  9. METOCLOPRAMIDE [Concomitant]
     Route: 048
     Dates: start: 20121217, end: 20130117

REACTIONS (5)
  - Tachycardia [Recovered/Resolved]
  - Hyperhidrosis [Recovered/Resolved]
  - Abdominal pain [Recovered/Resolved]
  - Scotoma [Recovered/Resolved]
  - Off label use [Unknown]
